FAERS Safety Report 5695643-1 (Version None)
Quarter: 2008Q2

REPORT INFORMATION
  Report Type: 
  Country: None (occurrence: None)
  Receive Date: 20080407
  Receipt Date: 20071119
  Transmission Date: 20081010
  Serious: No
  Sender: FDA-Public Use
  Company Number: US-BAYER-200715092NA

PATIENT
  Sex: Female

DRUGS (1)
  1. MIRENA [Suspect]
     Indication: DRUG USE FOR UNKNOWN INDICATION
     Route: 015

REACTIONS (5)
  - ABDOMINAL PAIN LOWER [None]
  - AMENORRHOEA [None]
  - FEELING ABNORMAL [None]
  - GALACTORRHOEA [None]
  - VAGINAL HAEMORRHAGE [None]
